FAERS Safety Report 25623930 (Version 1)
Quarter: 2025Q3

REPORT INFORMATION
  Report Type: Spontaneous
  Country: EU (occurrence: EU)
  Receive Date: 20250730
  Receipt Date: 20250730
  Transmission Date: 20251020
  Serious: Yes (Life-Threatening, Hospitalization)
  Sender: MERCK SHARP & DOHME LLC
  Company Number: None

PATIENT
  Age: 61 Year
  Sex: Female
  Weight: 94 kg

DRUGS (3)
  1. KEYTRUDA [Suspect]
     Active Substance: PEMBROLIZUMAB
     Indication: Lung adenocarcinoma
     Route: 042
     Dates: start: 20241122
  2. PEMETREXED ACCORD 100 MG POWDER FOR CONCENTRATE FOR SOLUTION FOR IN... [Concomitant]
     Indication: Lung adenocarcinoma
     Route: 042
     Dates: start: 20241122
  3. CARBOPLATIN ACCORD 10 mg/ml CONCENTRATE FOR SOLUTION FOR INFUSION E... [Concomitant]
     Indication: Lung adenocarcinoma
     Route: 042
     Dates: start: 20241122, end: 20250124

REACTIONS (1)
  - Type 1 diabetes mellitus [Not Recovered/Not Resolved]

NARRATIVE: CASE EVENT DATE: 20250304
